FAERS Safety Report 5853054-X (Version None)
Quarter: 2008Q3

REPORT INFORMATION
  Report Type: 
  Country: None (occurrence: None)
  Receive Date: 20080821
  Receipt Date: 20080812
  Transmission Date: 20090109
  Serious: Yes (Hospitalization, Disabling)
  Sender: FDA-Public Use
  Company Number: DE-ASTRAZENECA-2008PK01695

PATIENT
  Age: 19369 Day
  Sex: Female
  Weight: 90 kg

DRUGS (5)
  1. NAROPIN [Suspect]
     Indication: POSTOPERATIVE ANALGESIA
     Dosage: 1100 MG/60 H
     Route: 008
     Dates: start: 20080811
  2. NAROPIN [Suspect]
     Indication: ANAESTHESIA
     Dosage: 1100 MG/60 H
     Route: 008
     Dates: start: 20080811
  3. NAROPIN [Suspect]
     Dosage: 20 MG/H AS BOLUS
     Route: 008
     Dates: start: 20080811, end: 20080811
  4. NAROPIN [Suspect]
     Dosage: 20 MG/H AS BOLUS
     Route: 008
     Dates: start: 20080811, end: 20080811
  5. SUFENTANIL CITRATE [Concomitant]
     Indication: ANAESTHESIA
     Dosage: 25MG AS BOLUS
     Route: 008
     Dates: start: 20080811, end: 20080811

REACTIONS (1)
  - PARAPLEGIA [None]
